FAERS Safety Report 24539279 (Version 1)
Quarter: 2024Q4

REPORT INFORMATION
  Report Type: Spontaneous
  Country: DK (occurrence: DK)
  Receive Date: 20241023
  Receipt Date: 20241023
  Transmission Date: 20250115
  Serious: Yes (Other)
  Sender: MYLAN
  Company Number: DK-MYLANLABS-2024M1095643

PATIENT
  Age: 8 Decade
  Sex: Female

DRUGS (1)
  1. METHOTREXATE [Suspect]
     Active Substance: METHOTREXATE
     Indication: Rheumatoid arthritis
     Dosage: 10 MILLIGRAM, QW
     Route: 058

REACTIONS (3)
  - Stress fracture [Recovering/Resolving]
  - Multiple fractures [Recovering/Resolving]
  - Mobility decreased [Unknown]
